FAERS Safety Report 8628524 (Version 8)
Quarter: 2014Q2

REPORT INFORMATION
  Report Type: Report from Study
  Country: JP (occurrence: JP)
  Receive Date: 20120621
  Receipt Date: 20140421
  Transmission Date: 20141212
  Serious: Yes (Other)
  Sender: FDA-Public Use
  Company Number: JP-GLAXOSMITHKLINE-B0808722A

PATIENT
  Age: 69 Year
  Sex: Female
  Weight: 40 kg

DRUGS (10)
  1. SAMTIREL [Suspect]
     Indication: ANTIFUNGAL PROPHYLAXIS
     Dosage: 750MG TWICE PER DAY
     Route: 048
     Dates: start: 20120604, end: 20130228
  2. PREDNISOLONE [Suspect]
     Indication: ANTIFUNGAL PROPHYLAXIS
     Dosage: 15MG PER DAY
     Route: 048
     Dates: start: 20120405
  3. GASTER [Concomitant]
     Indication: GASTRITIS
     Dosage: 10MG PER DAY
     Route: 048
     Dates: start: 20120407
  4. MAGMITT [Concomitant]
     Indication: CONSTIPATION
     Dosage: 330MG THREE TIMES PER DAY
     Route: 048
     Dates: start: 20120405
  5. MYSLEE [Concomitant]
     Indication: INSOMNIA
     Dosage: 5MG PER DAY
     Route: 048
     Dates: start: 20120601
  6. BONALON [Concomitant]
     Indication: OSTEOPOROSIS
     Route: 048
     Dates: start: 20120419
  7. SOLUMEDROL [Concomitant]
     Indication: PNEUMOCYSTIS JIROVECII PNEUMONIA
     Dosage: .5G TWICE PER DAY
     Route: 042
     Dates: start: 20120402, end: 20120404
  8. PREDONINE [Concomitant]
     Indication: PNEUMOCYSTIS JIROVECII PNEUMONIA
     Dosage: 40MG TWICE PER DAY
     Dates: start: 20120405, end: 20120409
  9. PREDONINE [Concomitant]
     Indication: PNEUMOCYSTIS JIROVECII PNEUMONIA
     Dosage: 40MG PER DAY
     Dates: start: 20120410, end: 20120414
  10. PREDONINE [Concomitant]
     Indication: PNEUMOCYSTIS JIROVECII PNEUMONIA
     Dosage: 20MG PER DAY
     Dates: start: 20120415, end: 20120419

REACTIONS (2)
  - Hypokalaemia [Recovering/Resolving]
  - Blood bilirubin increased [Recovering/Resolving]
